FAERS Safety Report 6890840-1 (Version None)
Quarter: 2010Q3

REPORT INFORMATION
  Report Type: 
  Country: None (occurrence: None)
  Receive Date: 20100731
  Receipt Date: 20090330
  Transmission Date: 20110219
  Serious: No
  Sender: FDA-Public Use
  Company Number: US-PFIZER INC-2008155660

PATIENT
  Age: 75 Year
  Sex: Female
  Weight: 78.017 kg

DRUGS (6)
  1. LIPITOR [Suspect]
     Indication: BLOOD CHOLESTEROL INCREASED
     Dosage: UNK
  2. CARTIA XT [Concomitant]
     Indication: HYPERTENSION
  3. POTASSIUM [Concomitant]
     Dosage: UNK
  4. MONTELUKAST SODIUM [Concomitant]
     Dosage: UNK
  5. DIURETICS [Concomitant]
     Dosage: UNK
  6. SYNTHROID [Concomitant]
     Dosage: UNK

REACTIONS (5)
  - FEELING ABNORMAL [None]
  - INFLUENZA [None]
  - MYALGIA [None]
  - PAIN [None]
  - PAIN IN EXTREMITY [None]
